FAERS Safety Report 7906895-9 (Version None)
Quarter: 2011Q4

REPORT INFORMATION
  Report Type: 
  Country: None (occurrence: None)
  Receive Date: 20111110
  Receipt Date: 20111104
  Transmission Date: 20120403
  Serious: Yes (Hospitalization, Disabling, Other)
  Sender: FDA-Public Use
  Company Number: FI-ABBOTT-11P-055-0871504-00

PATIENT
  Sex: Male

DRUGS (14)
  1. SINGULAIR [Concomitant]
     Indication: ASTHMA
     Dosage: ONCE A DAY WHEN NEEDED
     Route: 048
  2. APOBASE [Concomitant]
     Indication: PRODUCT USED FOR UNKNOWN INDICATION
  3. ZOPICLONE [Concomitant]
     Indication: INSOMNIA
     Dosage: 0.5 ONCE A DAY AS NEEDED
     Route: 048
  4. SALBUMATOL SULFATE [Concomitant]
     Indication: ASTHMA
     Dosage: 1X3-4, WHEN NEEDED
     Route: 055
  5. HYDROCORTISONE [Concomitant]
     Indication: PRODUCT USED FOR UNKNOWN INDICATION
  6. MELOXICAM [Concomitant]
     Indication: JUVENILE ARTHRITIS
     Dosage: ONE TIME PER DAY WHEN NEEDED
     Route: 048
  7. CETIRIZINE HCL [Concomitant]
     Indication: RHINITIS ALLERGIC
     Dosage: ONCE A DAY WHEN NEEDED
     Route: 048
  8. PARA-TABS [Concomitant]
     Indication: JUVENILE ARTHRITIS
     Dosage: 3 TIMES A DAY WHEN NEEDED
     Route: 048
  9. HUMIRA [Suspect]
     Indication: JUVENILE ARTHRITIS
     Route: 058
     Dates: start: 20100101, end: 20110701
  10. NASONEX [Concomitant]
     Indication: RHINITIS ALLERGIC
     Dosage: ONCE A DAY AS NEEDED
     Route: 045
  11. LOMUDAL [Concomitant]
     Indication: HYPERSENSITIVITY
     Dosage: 1 DROP X1 TO BOTH EYES WHEN NEEDED
     Route: 047
  12. HUMIRA [Suspect]
     Dates: start: 20110921, end: 20110921
  13. SERETIDE EVOHALER 25/125 MICROGRAM [Concomitant]
     Indication: ASTHMA
     Route: 055
  14. VISCOTEARS [Concomitant]
     Indication: DRY EYE

REACTIONS (18)
  - TARDIVE DYSKINESIA [None]
  - PETIT MAL EPILEPSY [None]
  - CEREBELLAR SYNDROME [None]
  - DYSTONIA [None]
  - SPEECH DISORDER [None]
  - ANXIETY [None]
  - FATIGUE [None]
  - MUSCULOSKELETAL STIFFNESS [None]
  - REGRESSIVE BEHAVIOUR [None]
  - PAROXYSMAL PERCEPTUAL ALTERATION [None]
  - HYPERREFLEXIA [None]
  - HYPOAESTHESIA [None]
  - MYALGIA [None]
  - MUSCLE SPASMS [None]
  - FINE MOTOR DELAY [None]
  - RHABDOMYOLYSIS [None]
  - BLOOD CREATINE PHOSPHOKINASE INCREASED [None]
  - GAZE PALSY [None]
